FAERS Safety Report 6058929-7 (Version None)
Quarter: 2009Q1

REPORT INFORMATION
  Report Type: 
  Country: None (occurrence: None)
  Receive Date: 20090128
  Receipt Date: 20090128
  Transmission Date: 20090719
  Serious: Yes (Life-Threatening)
  Sender: FDA-Public Use
  Company Number: None

PATIENT

DRUGS (2)
  1. TIAZAC [Suspect]
  2. VASOTEC [Suspect]

REACTIONS (2)
  - GENERAL PHYSICAL HEALTH DETERIORATION [None]
  - URINE ARSENIC [None]
